FAERS Safety Report 17775457 (Version 1)
Quarter: 2020Q2

REPORT INFORMATION
  Report Type: Spontaneous
  Country: US (occurrence: US)
  Receive Date: 20200513
  Receipt Date: 20200513
  Transmission Date: 20200714
  Serious: No
  Sender: FDA-Public Use
  Company Number: US-BAYER-2020-070822

PATIENT
  Age: 41 Year
  Sex: Female

DRUGS (1)
  1. ALEVE BACK AND MUSCLE PAIN [Suspect]
     Active Substance: NAPROXEN SODIUM
     Dosage: 1 TABLET EVERY 8 TO 12 HOURS
     Route: 048
     Dates: start: 202004, end: 202004

REACTIONS (3)
  - Drug ineffective [Unknown]
  - Incorrect product administration duration [Unknown]
  - Product colour issue [None]

NARRATIVE: CASE EVENT DATE: 202004
